FAERS Safety Report 8168857-9 (Version None)
Quarter: 2012Q1

REPORT INFORMATION
  Report Type: 
  Country: None (occurrence: None)
  Receive Date: 20120227
  Receipt Date: 20120222
  Transmission Date: 20120608
  Serious: Yes (Other)
  Sender: FDA-Public Use
  Company Number: US-PFIZER INC-2012047477

PATIENT
  Sex: Male
  Weight: 88.435 kg

DRUGS (2)
  1. VIAGRA [Suspect]
     Dosage: 50 MG, AS NEEDED
     Route: 048
  2. VIAGRA [Suspect]
     Indication: SEXUAL DYSFUNCTION
     Dosage: UNK
     Route: 048

REACTIONS (3)
  - SEXUAL DYSFUNCTION [None]
  - PROSTATE CANCER [None]
  - DRUG INEFFECTIVE [None]
